FAERS Safety Report 6506300-3 (Version None)
Quarter: 2009Q4

REPORT INFORMATION
  Report Type: 
  Country: None (occurrence: None)
  Receive Date: 20091218
  Receipt Date: 20091208
  Transmission Date: 20100525
  Serious: Yes (Hospitalization, Other)
  Sender: FDA-Public Use
  Company Number: US-AMGEN-QUU374514

PATIENT
  Sex: Male
  Weight: 77 kg

DRUGS (8)
  1. SENSIPAR [Suspect]
     Indication: DRUG USE FOR UNKNOWN INDICATION
     Dates: end: 20091113
  2. ZOCOR [Concomitant]
  3. TENORMIN [Concomitant]
  4. CLONAZEPAM [Concomitant]
  5. AMBIEN [Concomitant]
  6. ACYCLOVIR [Concomitant]
  7. POTASSIUM CHLORIDE [Concomitant]
     Route: 048
  8. TYLENOL (CAPLET) [Concomitant]

REACTIONS (11)
  - AZOTAEMIA [None]
  - CHEST PAIN [None]
  - DIZZINESS [None]
  - FEELING ABNORMAL [None]
  - HOSPITALISATION [None]
  - HYPERSENSITIVITY [None]
  - HYPOPHAGIA [None]
  - NAUSEA [None]
  - NERVOUSNESS [None]
  - PLEURAL EFFUSION [None]
  - WEIGHT INCREASED [None]
